FAERS Safety Report 5262725-8 (Version None)
Quarter: 2007Q1

REPORT INFORMATION
  Report Type: 
  Country: None (occurrence: None)
  Receive Date: 20070312
  Receipt Date: 20070228
  Transmission Date: 20070707
  Serious: Yes (Hospitalization, Other)
  Sender: FDA-Public Use
  Company Number: 2006UW21906

PATIENT
  Age: 14129 Day
  Sex: Female

DRUGS (16)
  1. SEROQUEL [Suspect]
     Indication: DEPRESSION
     Dosage: 100-200 MG
     Route: 048
     Dates: start: 20051001, end: 20051201
  2. SEROQUEL [Suspect]
     Indication: MENTAL DISORDER
     Dosage: 100-200 MG
     Route: 048
     Dates: start: 20051001, end: 20051201
  3. ABILIFY [Suspect]
     Dates: start: 20040101, end: 20050101
  4. GEODON [Suspect]
     Dates: start: 20050101
  5. RISPERDAL [Suspect]
     Dates: start: 20040301, end: 20050801
  6. THORAZINE [Suspect]
     Dates: start: 19930101, end: 19940101
  7. PERPHENAZINE [Suspect]
     Dates: start: 20040101, end: 20050101
  8. LEXAPRO [Suspect]
  9. TRAZODONE HCL [Suspect]
  10. EFFEXOR [Suspect]
  11. PAXIL [Suspect]
  12. ATIVAN [Suspect]
  13. BUSPAR [Suspect]
  14. ETRAFAN [Suspect]
  15. REMERON [Suspect]
  16. LAMICTAL [Concomitant]

REACTIONS (6)
  - BLOOD CHOLESTEROL INCREASED [None]
  - BLOOD TRIGLYCERIDES INCREASED [None]
  - DIABETES MELLITUS [None]
  - HYPERLIPIDAEMIA [None]
  - NEUROLEPTIC MALIGNANT SYNDROME [None]
  - OVARIAN CYST [None]
